FAERS Safety Report 4999885-X (Version None)
Quarter: 2006Q2

REPORT INFORMATION
  Report Type: 
  Country: None (occurrence: None)
  Receive Date: 20060509
  Receipt Date: 20060424
  Transmission Date: 20061013
  Serious: Yes (Death)
  Sender: FDA-Public Use
  Company Number: S06-NOR-01283-01

PATIENT
  Age: 19 Year
  Sex: Female

DRUGS (2)
  1. CIPRAMIL (CITALOPRAM HYDROBROMIDE) [Suspect]
     Indication: DEPRESSION
  2. SOBRIL(OXAZEPAM) [Concomitant]

REACTIONS (22)
  - ANXIETY [None]
  - BLOOD CALCIUM DECREASED [None]
  - BLOOD SODIUM DECREASED [None]
  - CARDIAC ARREST [None]
  - CARDIAC FAILURE [None]
  - CARDIOGENIC SHOCK [None]
  - EJECTION FRACTION DECREASED [None]
  - ELECTROCARDIOGRAM QT CORRECTED INTERVAL PROLONGED [None]
  - ELECTROCARDIOGRAM QT PROLONGED [None]
  - HEPATIC FAILURE [None]
  - INTERNATIONAL NORMALISED RATIO INCREASED [None]
  - LOCAL SWELLING [None]
  - MULTI-ORGAN FAILURE [None]
  - NERVOUS SYSTEM DISORDER [None]
  - OVARIAN CYST [None]
  - POST PROCEDURAL NAUSEA [None]
  - PROCEDURAL PAIN [None]
  - RENAL FAILURE [None]
  - RHABDOMYOLYSIS [None]
  - SYNCOPE [None]
  - VENTRICULAR FIBRILLATION [None]
  - VIRAL INFECTION [None]
